FAERS Safety Report 4775820-4 (Version None)
Quarter: 2005Q3

REPORT INFORMATION
  Report Type: 
  Country: None (occurrence: None)
  Receive Date: 20050922
  Receipt Date: 20041220
  Transmission Date: 20060218
  Serious: Yes (Hospitalization, Disabling)
  Sender: FDA-Public Use
  Company Number: DE-MERCK-0501DEU00029

PATIENT
  Age: 55 Year
  Sex: Female
  Weight: 55 kg

DRUGS (4)
  1. FOSAMAX [Suspect]
     Indication: OSTEOPOROSIS
     Route: 048
     Dates: start: 19980227
  2. FOSAMAX [Suspect]
     Route: 048
     Dates: end: 20041201
  3. CANDESARTAN CILEXETIL [Concomitant]
     Indication: HYPERTENSION
     Route: 048
     Dates: start: 19980101
  4. TIBOLONE [Concomitant]
     Indication: MENOPAUSAL SYMPTOMS
     Route: 065
     Dates: start: 20011001

REACTIONS (5)
  - HYPERTENSION [None]
  - MENOMETRORRHAGIA [None]
  - OSSICLE DISORDER [None]
  - SALPINGITIS [None]
  - TYMPANOSCLEROSIS [None]
